FAERS Safety Report 6268034-2 (Version None)
Quarter: 2009Q3

REPORT INFORMATION
  Report Type: 
  Country: None (occurrence: None)
  Receive Date: 20090713
  Receipt Date: 20090703
  Transmission Date: 20100115
  Serious: Yes (Other)
  Sender: FDA-Public Use
  Company Number: WAES  0906USA02999

PATIENT
  Age: 60 Year
  Sex: Male

DRUGS (10)
  1. SINGULAIR [Suspect]
     Indication: RHINITIS PERENNIAL
     Dosage: 10 MG DAILY PO
     Route: 048
     Dates: start: 20081112
  2. ACDEAM [Concomitant]
  3. CRAVIT [Concomitant]
  4. LOXONIN [Concomitant]
  5. MEIACT [Concomitant]
  6. MUCOSTA [Concomitant]
  7. PONTAL [Concomitant]
  8. TALION [Concomitant]
  9. TRANSAMIN [Concomitant]
  10. FLUTICASONE PROPIONATE [Concomitant]

REACTIONS (2)
  - GASTRIC POLYPS [None]
  - LUNG NEOPLASM MALIGNANT [None]
